FAERS Safety Report 4531819-4 (Version None)
Quarter: 2004Q4

REPORT INFORMATION
  Report Type: 
  Country: None (occurrence: None)
  Receive Date: 20041216
  Receipt Date: 20041124
  Transmission Date: 20050328
  Serious: Yes (Other)
  Sender: FDA-Public Use
  Company Number: US_0412108745

PATIENT
  Age: 68 Year
  Sex: Female

DRUGS (3)
  1. EVISTA [Suspect]
     Dates: start: 20020201
  2. FOSAMAX [Concomitant]
  3. ACTONEL [Concomitant]

REACTIONS (2)
  - GASTROINTESTINAL HAEMORRHAGE [None]
  - MULTIPLE FRACTURES [None]
